FAERS Safety Report 25118993 (Version 1)
Quarter: 2025Q1

REPORT INFORMATION
  Report Type: Spontaneous
  Country: GB (occurrence: GB)
  Receive Date: 20250325
  Receipt Date: 20250325
  Transmission Date: 20250409
  Serious: Yes (Life-Threatening, Hospitalization, Other)
  Sender: ALEXION PHARMACEUTICALS
  Company Number: GB-AstraZeneca-CH-00832931A

PATIENT
  Age: 70 Year

DRUGS (3)
  1. TREMELIMUMAB [Suspect]
     Active Substance: TREMELIMUMAB
     Indication: Hepatocellular carcinoma
  2. DURVALUMAB [Suspect]
     Active Substance: DURVALUMAB
     Indication: Hepatocellular carcinoma
  3. NINTEDANIB [Concomitant]
     Active Substance: NINTEDANIB
     Route: 065

REACTIONS (3)
  - Pneumonitis [Unknown]
  - Lower respiratory tract infection [Unknown]
  - Pulmonary fibrosis [Unknown]
